FAERS Safety Report 6221582-3 (Version None)
Quarter: 2009Q2

REPORT INFORMATION
  Report Type: 
  Country: None (occurrence: None)
  Receive Date: 20090610
  Receipt Date: 20090216
  Transmission Date: 20091009
  Serious: Yes (Other)
  Sender: FDA-Public Use
  Company Number: BR-JNJFOC-20081104418

PATIENT
  Sex: Female
  Weight: 57.5 kg

DRUGS (8)
  1. TOPAMAX [Suspect]
     Indication: WEIGHT LOSS DIET
     Route: 048
  2. TOPAMAX [Suspect]
     Indication: DRUG USE FOR UNKNOWN INDICATION
     Route: 048
  3. XENICAL [Concomitant]
  4. XENICAL [Concomitant]
     Indication: WEIGHT LOSS DIET
  5. BONIVA [Concomitant]
     Indication: BLOOD CALCIUM
  6. PURAN [Concomitant]
     Indication: HYPOTHYROIDISM
  7. OSCAL [Concomitant]
     Indication: DRUG USE FOR UNKNOWN INDICATION
  8. SIBUTRAMINE [Concomitant]
     Indication: DRUG USE FOR UNKNOWN INDICATION

REACTIONS (1)
  - DEPRESSION [None]
